FAERS Safety Report 16725820 (Version 1)
Quarter: 2019Q3

REPORT INFORMATION
  Report Type: Spontaneous
  Country: US (occurrence: US)
  Receive Date: 20190821
  Receipt Date: 20190821
  Transmission Date: 20191005
  Serious: Yes (Hospitalization)
  Sender: FDA-Public Use
  Company Number: US-ROCHE-2375639

PATIENT
  Age: 48 Year
  Sex: Female

DRUGS (35)
  1. ASPIRIN [ACETYLSALICYLIC ACID] [Concomitant]
     Active Substance: ASPIRIN
  2. EPIPEN [Concomitant]
     Active Substance: EPINEPHRINE
  3. RANITIDINE. [Concomitant]
     Active Substance: RANITIDINE
  4. SINGULAIR [Concomitant]
     Active Substance: MONTELUKAST SODIUM
  5. HYDRALAZINE [Concomitant]
     Active Substance: HYDRALAZINE HYDROCHLORIDE
  6. LEXAPRO [Concomitant]
     Active Substance: ESCITALOPRAM OXALATE
  7. LEVSIN [Concomitant]
     Active Substance: HYOSCYAMINE SULFATE
  8. MAG OXIDE [Concomitant]
     Active Substance: MAGNESIUM OXIDE
  9. SPIRIVA [Concomitant]
     Active Substance: TIOTROPIUM BROMIDE MONOHYDRATE
  10. XOLAIR [Suspect]
     Active Substance: OMALIZUMAB
     Indication: ASTHMA
     Route: 058
     Dates: start: 20151118
  11. MECLIZINE [Concomitant]
     Active Substance: MECLIZINE HYDROCHLORIDE
     Route: 065
  12. ALLEGRA [Concomitant]
     Active Substance: FEXOFENADINE HYDROCHLORIDE
  13. DEPAKOTE [Concomitant]
     Active Substance: DIVALPROEX SODIUM
  14. HUMALOG [Concomitant]
     Active Substance: INSULIN LISPRO
  15. LYRICA [Concomitant]
     Active Substance: PREGABALIN
  16. PREVACID [Concomitant]
     Active Substance: LANSOPRAZOLE
  17. SYMBICORT [Concomitant]
     Active Substance: BUDESONIDE\FORMOTEROL FUMARATE DIHYDRATE
  18. VIBERZI [Concomitant]
     Active Substance: ELUXADOLINE
  19. AVAPRO [Concomitant]
     Active Substance: IRBESARTAN
  20. DEXILANT [Concomitant]
     Active Substance: DEXLANSOPRAZOLE
  21. GLUCAGON. [Concomitant]
     Active Substance: GLUCAGON
  22. IPRATROPIUM [Concomitant]
     Active Substance: IPRATROPIUM
  23. PATADAY [Concomitant]
     Active Substance: OLOPATADINE HYDROCHLORIDE
  24. PENLAC [Concomitant]
     Active Substance: CICLOPIROX
  25. ATIVAN [Concomitant]
     Active Substance: LORAZEPAM
     Dosage: AS NEEDED
     Route: 065
  26. PROMETHAZINE [Concomitant]
     Active Substance: PROMETHAZINE HYDROCHLORIDE
  27. PRAVACHOL [Concomitant]
     Active Substance: PRAVASTATIN SODIUM
  28. AZELASTINE. [Concomitant]
     Active Substance: AZELASTINE HYDROCHLORIDE
  29. CIPRODEX [Concomitant]
     Active Substance: CIPROFLOXACIN HYDROCHLORIDE\DEXAMETHASONE
  30. CLONAZEPAM. [Concomitant]
     Active Substance: CLONAZEPAM
  31. QNASL [Concomitant]
     Active Substance: BECLOMETHASONE DIPROPIONATE
  32. ALBUTEROL [SALBUTAMOL] [Concomitant]
     Active Substance: ALBUTEROL
  33. FIORICET [Concomitant]
     Active Substance: ACETAMINOPHEN\BUTALBITAL\CAFFEINE
  34. LEVOTHYROXINE. [Concomitant]
     Active Substance: LEVOTHYROXINE
  35. ZANTAC [Concomitant]
     Active Substance: RANITIDINE HYDROCHLORIDE

REACTIONS (3)
  - Dizziness [Unknown]
  - Dehydration [Unknown]
  - Erythrasma [Unknown]

NARRATIVE: CASE EVENT DATE: 20190801
